FAERS Safety Report 16568745 (Version 1)
Quarter: 2019Q3

REPORT INFORMATION
  Report Type: Spontaneous
  Country: DE (occurrence: DE)
  Receive Date: 20190713
  Receipt Date: 20190713
  Transmission Date: 20191004
  Serious: Yes (Hospitalization)
  Sender: FDA-Public Use
  Company Number: DE-TEVA-2019-DE-1075836

PATIENT
  Age: 44 Year
  Sex: Male

DRUGS (6)
  1. METRONIDAZOL [Suspect]
     Active Substance: METRONIDAZOLE
     Dosage: 400 MG, 1-0-1-0
     Route: 065
  2. VITASPRINT B12 [Concomitant]
     Dosage: NK MG, NK
  3. MINOCYCLINE [Suspect]
     Active Substance: MINOCYCLINE HYDROCHLORIDE
     Dosage: NK MG, NK
     Route: 065
  4. PERENTEROL [Concomitant]
     Active Substance: SACCHAROMYCES CEREVISIAE
     Dosage: NK MG, NK
  5. FROXIMUN TOXAPREVENT AKUT [Concomitant]
     Dosage: NK MG, NK
  6. DEKRISTOL [Concomitant]
     Active Substance: CHOLECALCIFEROL
     Dosage: NK IE, NK

REACTIONS (3)
  - Product prescribing error [Unknown]
  - Asthenia [Unknown]
  - Arthralgia [Unknown]

NARRATIVE: CASE EVENT DATE: 20170701
